FAERS Safety Report 19657305 (Version 3)
Quarter: 2022Q1

REPORT INFORMATION
  Report Type: Spontaneous
  Country: US (occurrence: US)
  Receive Date: 20210804
  Receipt Date: 20220225
  Transmission Date: 20220423
  Serious: Yes (Other)
  Sender: FDA-Public Use
  Company Number: NVSC2021US167613

PATIENT

DRUGS (1)
  1. GILENYA [Suspect]
     Active Substance: FINGOLIMOD HYDROCHLORIDE
     Indication: Foetal exposure during pregnancy
     Dosage: MATERNAL DOSE: UNKOWN
     Route: 064

REACTIONS (3)
  - Heart disease congenital [Unknown]
  - Congenital tricuspid valve atresia [Unknown]
  - Foetal exposure during pregnancy [Unknown]
